FAERS Safety Report 24782486 (Version 1)
Quarter: 2024Q4

REPORT INFORMATION
  Report Type: Spontaneous
  Country: US (occurrence: US)
  Receive Date: 20241227
  Receipt Date: 20241227
  Transmission Date: 20250114
  Serious: Yes (Hospitalization)
  Sender: ALEXION PHARMACEUTICALS
  Company Number: US-ASTRAZENECA-202412USA019605US

PATIENT

DRUGS (5)
  1. LYNPARZA [Suspect]
     Active Substance: OLAPARIB
  2. LYNPARZA [Suspect]
     Active Substance: OLAPARIB
     Route: 048
  3. LYNPARZA [Suspect]
     Active Substance: OLAPARIB
  4. LYNPARZA [Suspect]
     Active Substance: OLAPARIB
     Route: 048
  5. VUDALIMAB [Suspect]
     Active Substance: VUDALIMAB

REACTIONS (6)
  - Anaemia [Unknown]
  - Hypotension [Unknown]
  - Fatigue [Unknown]
  - Weight decreased [Unknown]
  - Dizziness [Unknown]
  - Bone marrow disorder [Unknown]
